FAERS Safety Report 7640619 (Version 4)
Quarter: 2014Q4

REPORT INFORMATION
  Report Type: Report from Study
  Country: DE (occurrence: DE)
  Receive Date: 20101026
  Receipt Date: 20141117
  Transmission Date: 20150529
  Serious: Yes (Hospitalization, Other)
  Sender: FDA-Public Use
  Company Number: PHHO2010DE15766

PATIENT
  Age: 42 Year
  Sex: Female
  Weight: 85 kg

DRUGS (7)
  1. AFINITOR [Suspect]
     Active Substance: EVEROLIMUS
     Dosage: 10 MG, QD
     Route: 048
     Dates: end: 20101221
  2. RAMIPRIL. [Concomitant]
     Active Substance: RAMIPRIL
     Indication: HYPERTENSION
     Route: 065
  3. BISOPROLOL [Concomitant]
     Active Substance: BISOPROLOL
     Indication: HYPERTENSION
     Dosage: UNK
     Route: 065
     Dates: start: 20100901
  4. AFINITOR [Suspect]
     Active Substance: EVEROLIMUS
     Indication: NEUROENDOCRINE TUMOUR
     Dosage: 10 MG, QD
     Route: 048
     Dates: start: 20090812, end: 20091120
  5. AFINITOR [Suspect]
     Active Substance: EVEROLIMUS
     Dosage: 10 MG, QD
     Route: 048
     Dates: start: 20091201, end: 20100421
  6. TAMIFLU [Concomitant]
     Active Substance: OSELTAMIVIR PHOSPHATE
     Indication: H1N1 INFLUENZA
     Dosage: UNK
     Route: 065
     Dates: start: 20091120, end: 20091124
  7. CHLORMADINONE [Concomitant]
     Active Substance: CHLORMADINONE
     Indication: MENSTRUATION IRREGULAR
     Dosage: UNK
     Route: 065
     Dates: start: 20101001

REACTIONS (4)
  - H1N1 influenza [Recovered/Resolved]
  - Pneumonitis [Not Recovered/Not Resolved]
  - Atelectasis [Not Recovered/Not Resolved]
  - Lung infiltration [Not Recovered/Not Resolved]

NARRATIVE: CASE EVENT DATE: 20091117
